FAERS Safety Report 5861092-6 (Version None)
Quarter: 2008Q3

REPORT INFORMATION
  Report Type: 
  Country: None (occurrence: None)
  Receive Date: 20080827
  Receipt Date: 20080214
  Transmission Date: 20090109
  Serious: No
  Sender: FDA-Public Use
  Company Number: US-ABBOTT-08P-163-0438525-00

PATIENT
  Sex: Female
  Weight: 86.26 kg

DRUGS (6)
  1. NIASPAN [Suspect]
     Indication: APOLIPOPROTEIN A-I DECREASED
     Route: 048
     Dates: start: 20080124
  2. ACETYLSALICYLIC ACID SRT [Concomitant]
     Indication: PREMEDICATION
     Route: 048
  3. BLOOD PRESSURE MEDICATION [Concomitant]
     Indication: HYPERTENSION
     Route: 048
  4. LEVOTHYROXINE [Concomitant]
     Indication: THYROIDECTOMY
     Route: 048
  5. ANTIDEPRESSANTS [Concomitant]
     Indication: DRUG USE FOR UNKNOWN INDICATION
     Route: 048
  6. VITAMIN TAB [Concomitant]
     Indication: DRUG USE FOR UNKNOWN INDICATION
     Route: 048

REACTIONS (1)
  - FLUSHING [None]
